FAERS Safety Report 4855935-2 (Version None)
Quarter: 2005Q4

REPORT INFORMATION
  Report Type: 
  Country: None (occurrence: None)
  Receive Date: 20051216
  Receipt Date: 20051214
  Transmission Date: 20060501
  Serious: Yes (Other)
  Sender: FDA-Public Use
  Company Number: FR-GLAXOSMITHKLINE-B0403736A

PATIENT
  Sex: Male

DRUGS (1)
  1. NARAMIG [Suspect]
     Indication: MIGRAINE
     Route: 048

REACTIONS (3)
  - BLINDNESS [None]
  - VISUAL ACUITY REDUCED [None]
  - VITREOUS FLOATERS [None]
